FAERS Safety Report 5170335-6 (Version None)
Quarter: 2006Q4

REPORT INFORMATION
  Report Type: 
  Country: None (occurrence: None)
  Receive Date: 20061204
  Receipt Date: 20061120
  Transmission Date: 20070319
  Serious: Yes (Other)
  Sender: FDA-Public Use
  Company Number: 2006JP004072

PATIENT
  Age: 87 Year
  Sex: Female

DRUGS (4)
  1. VESICARE [Suspect]
     Indication: HYPERTONIC BLADDER
     Dosage: 5 M G, UID/QD, ORAL
     Route: 048
     Dates: start: 20060918, end: 20060928
  2. ARICEPT [Concomitant]
  3. AMLODIN (AMLODIPINE BESILATE) TABLET [Concomitant]
  4. BLOPRESS (CANDESARTAN CILEXETIL) TABLET [Concomitant]

REACTIONS (1)
  - SINUS BRADYCARDIA [None]
